FAERS Safety Report 16381023 (Version 2)
Quarter: 2019Q2

REPORT INFORMATION
  Report Type: Spontaneous
  Country: CN (occurrence: CN)
  Receive Date: 20190602
  Receipt Date: 20190610
  Transmission Date: 20190711
  Serious: Yes (Hospitalization, Other)
  Sender: FDA-Public Use
  Company Number: PHHY2019CN093871

PATIENT
  Age: 7 Year
  Sex: Male
  Weight: 23 kg

DRUGS (2)
  1. DEPAKINE [Concomitant]
     Active Substance: VALPROATE SODIUM
     Indication: TEMPORAL LOBE EPILEPSY
     Dosage: 1 DF (0.25 MG IN THE MORNING AND 0.5 G IN THE EVENING), BID
     Route: 048
     Dates: start: 20190401, end: 20190414
  2. TRILEPTAL [Suspect]
     Active Substance: OXCARBAZEPINE
     Indication: TEMPORAL LOBE EPILEPSY
     Dosage: 300 MG, BID
     Route: 048
     Dates: start: 20190401, end: 20190415

REACTIONS (20)
  - Rash generalised [Recovered/Resolved]
  - Epilepsy [Unknown]
  - Chapped lips [Unknown]
  - Photophobia [Unknown]
  - Blood pressure decreased [Unknown]
  - Stevens-Johnson syndrome [Recovered/Resolved]
  - Rash [Recovered/Resolved]
  - Pyrexia [Unknown]
  - Drug hypersensitivity [Recovered/Resolved]
  - Angular cheilitis [Unknown]
  - Herpes simplex [Unknown]
  - Pupils unequal [Unknown]
  - Hepatic function abnormal [Recovered/Resolved]
  - Respiration abnormal [Unknown]
  - Hypothyroidism [Recovered/Resolved]
  - Cerebral palsy [Unknown]
  - Toxic epidermal necrolysis [Recovered/Resolved]
  - Drug reaction with eosinophilia and systemic symptoms [Recovered/Resolved]
  - Rash maculo-papular [Unknown]
  - Eye discharge [Unknown]

NARRATIVE: CASE EVENT DATE: 201904
